FAERS Safety Report 25150975 (Version 5)
Quarter: 2025Q2

REPORT INFORMATION
  Report Type: Spontaneous
  Country: US (occurrence: US)
  Receive Date: 20250402
  Receipt Date: 20250522
  Transmission Date: 20250716
  Serious: Yes (Hospitalization)
  Sender: SANOFI AVENTIS
  Company Number: US-SA-2025SA094095

PATIENT
  Age: 4 Year
  Sex: Male
  Weight: 18.64 kg

DRUGS (2)
  1. LUMIZYME [Suspect]
     Active Substance: ALGLUCOSIDASE ALFA
     Indication: Glycogen storage disease type II
     Dosage: 350 MG, BIM
     Route: 042
     Dates: start: 202306
  2. ACETAMINOPHEN [Concomitant]
     Active Substance: ACETAMINOPHEN
     Indication: Premedication
     Route: 048

REACTIONS (7)
  - Viral infection [Unknown]
  - Pyrexia [Unknown]
  - Dehydration [Unknown]
  - Infusion related reaction [Unknown]
  - Catheter site erythema [Recovered/Resolved]
  - Catheter site swelling [Recovered/Resolved]
  - Catheter site extravasation [Recovered/Resolved]

NARRATIVE: CASE EVENT DATE: 20250329
